FAERS Safety Report 9008889 (Version 3)
Quarter: 2013Q3

REPORT INFORMATION
  Report Type: Report from Study
  Country: DE (occurrence: DE)
  Receive Date: 20130111
  Receipt Date: 20130805
  Transmission Date: 20140515
  Serious: Yes (Hospitalization, Other)
  Sender: FDA-Public Use
  Company Number: DE-ABBOTT-13P-062-1030867-00

PATIENT
  Age: 61 Year
  Sex: Male
  Weight: 100 kg

DRUGS (6)
  1. HUMIRA [Suspect]
     Indication: PSORIATIC ARTHROPATHY
     Route: 058
     Dates: start: 20120115, end: 20121202
  2. METHOTREXATE [Concomitant]
     Indication: PSORIATIC ARTHROPATHY
     Dates: end: 201306
  3. BISOPROLOL [Concomitant]
     Indication: PRODUCT USED FOR UNKNOWN INDICATION
  4. IBUPROFEN [Concomitant]
     Indication: PSORIATIC ARTHROPATHY
  5. TRAMADOL [Concomitant]
     Indication: PSORIATIC ARTHROPATHY
  6. NOVAMINSULFON [Concomitant]
     Indication: PSORIATIC ARTHROPATHY

REACTIONS (4)
  - Pelvic inflammatory disease [Recovered/Resolved]
  - Sepsis [Recovered/Resolved]
  - Perirectal abscess [Recovered/Resolved]
  - Skin reaction [Unknown]
